FAERS Safety Report 20845938 (Version 1)
Quarter: 2022Q2

REPORT INFORMATION
  Report Type: Spontaneous
  Country: US (occurrence: US)
  Receive Date: 20220518
  Receipt Date: 20220518
  Transmission Date: 20220721
  Serious: No
  Sender: FDA-Public Use
  Company Number: US-PFIZER INC-202101619389

PATIENT
  Age: 6 Year
  Sex: Male
  Weight: 17.24 kg

DRUGS (2)
  1. HYDROCORTISONE ACETATE [Suspect]
     Active Substance: HYDROCORTISONE ACETATE
     Indication: Pruritus
     Dosage: UNK, AS NEEDED
  2. ALLEGRA [Suspect]
     Active Substance: FEXOFENADINE HYDROCHLORIDE
     Dosage: 5 MG, 1X/DAY

REACTIONS (1)
  - Drug ineffective [Unknown]
